FAERS Safety Report 6346706-9 (Version None)
Quarter: 2009Q3

REPORT INFORMATION
  Report Type: 
  Country: None (occurrence: None)
  Receive Date: 20090904
  Receipt Date: 20090827
  Transmission Date: 20100115
  Serious: Yes (Other)
  Sender: FDA-Public Use
  Company Number: GXKR2009TR09651

PATIENT
  Age: 21 Year
  Sex: Male

DRUGS (3)
  1. CYCLOSPORINE [Suspect]
     Indication: ERYTHRODERMIC PSORIASIS
     Dosage: 200 MG/DAY
  2. FLUOXETINE [Suspect]
     Indication: DEPRESSIVE SYMPTOM
     Dosage: 10 MG/DAY
  3. ACITRETIN [Suspect]
     Indication: PUSTULAR PSORIASIS
     Dosage: 35 MG/DAY

REACTIONS (5)
  - CONDITION AGGRAVATED [None]
  - DRUG INTERACTION [None]
  - ERYTHRODERMIC PSORIASIS [None]
  - NO THERAPEUTIC RESPONSE [None]
  - PUSTULAR PSORIASIS [None]
